FAERS Safety Report 11432386 (Version 1)
Quarter: 2015Q3

REPORT INFORMATION
  Report Type: Spontaneous
  Country: CA (occurrence: CA)
  Receive Date: 20150828
  Receipt Date: 20150828
  Transmission Date: 20151125
  Serious: Yes (Other)
  Sender: FDA-Public Use
  Company Number: CA-TEVA-589015USA

PATIENT
  Age: 31 Year
  Sex: Female
  Weight: 54.48 kg

DRUGS (1)
  1. PLAN B [Suspect]
     Active Substance: LEVONORGESTREL
     Indication: POST COITAL CONTRACEPTION
     Dosage: BOTH TAKEN TOGETHER
     Route: 065
     Dates: start: 20150731, end: 20150731

REACTIONS (2)
  - Menstruation irregular [Unknown]
  - Haemorrhage [Recovered/Resolved]

NARRATIVE: CASE EVENT DATE: 20150804
